FAERS Safety Report 9761084 (Version 4)
Quarter: 2014Q1

REPORT INFORMATION
  Report Type: Spontaneous
  Country: IT (occurrence: IT)
  Receive Date: 20131216
  Receipt Date: 20140116
  Transmission Date: 20141002
  Serious: Yes (Hospitalization)
  Sender: FDA-Public Use
  Company Number: IT-ACTAVIS-2013-21343

PATIENT
  Age: 42 Year
  Sex: Female

DRUGS (2)
  1. ALPRAZOLAM (UNKNOWN) [Suspect]
     Indication: INTENTIONAL SELF-INJURY
     Dosage: UNK
     Route: 065
     Dates: start: 20130106, end: 20130106
  2. WELLBUTRIN [Suspect]
     Indication: INTENTIONAL SELF-INJURY
     Dosage: UNK
     Route: 065
     Dates: start: 20130106, end: 20130106

REACTIONS (3)
  - Psychomotor retardation [Recovered/Resolved]
  - Urinary retention [Recovered/Resolved]
  - Drug abuse [Recovered/Resolved]
